FAERS Safety Report 6715746-X (Version None)
Quarter: 2010Q2

REPORT INFORMATION
  Report Type: 
  Country: None (occurrence: None)
  Receive Date: 20100507
  Receipt Date: 20100426
  Transmission Date: 20101027
  Serious: Yes (Hospitalization)
  Sender: FDA-Public Use
  Company Number: US-JNJFOC-20100303226

PATIENT
  Sex: Male
  Weight: 76.2 kg

DRUGS (6)
  1. REMICADE [Suspect]
     Indication: BEHCET'S SYNDROME
     Route: 042
  2. REMICADE [Suspect]
     Route: 042
  3. PLAQUENIL [Concomitant]
  4. METHOTREXATE [Concomitant]
     Indication: BEHCET'S SYNDROME
  5. FOLIC ACID [Concomitant]
     Indication: BEHCET'S SYNDROME
  6. COLCHICINE [Concomitant]
     Indication: BEHCET'S SYNDROME

REACTIONS (3)
  - COMPUTERISED TOMOGRAM ABNORMAL [None]
  - HEMIPLEGIA [None]
  - MYELITIS TRANSVERSE [None]
